FAERS Safety Report 16622416 (Version 10)
Quarter: 2021Q2

REPORT INFORMATION
  Report Type: Other
  Country: GB (occurrence: GB)
  Receive Date: 20190724
  Receipt Date: 20210510
  Transmission Date: 20210716
  Serious: Yes (Death, Hospitalization, Disabling, Other)
  Sender: FDA-Public Use
  Company Number: GB-CELLTRION INC.-2019GB022769

PATIENT

DRUGS (47)
  1. GLUCOSAMINE [Concomitant]
     Active Substance: GLUCOSAMINE
     Dosage: UNK, DAILY
     Route: 048
     Dates: start: 20171213, end: 20190703
  2. VERAPAMIL [Concomitant]
     Active Substance: VERAPAMIL HYDROCHLORIDE
     Indication: VENTRICULAR EXTRASYSTOLES
     Dosage: UNK
     Route: 048
     Dates: start: 20160906, end: 20190703
  3. LOPERAMIDE [Concomitant]
     Active Substance: LOPERAMIDE
     Dosage: 2 MG
     Route: 048
     Dates: start: 20181101, end: 20190703
  4. NYSTATIN. [Concomitant]
     Active Substance: NYSTATIN
     Indication: ORAL CANDIDIASIS
     Dosage: UNK PER 0.25 DAY
     Route: 048
     Dates: start: 20190614, end: 20190629
  5. CO?AMOXICLAV [AMOXICILLIN;CLAVULANATE POTASSIUM] [Concomitant]
     Active Substance: AMOXICILLIN\CLAVULANATE POTASSIUM
     Dosage: 1 DF PER 0.33 DAY
     Route: 048
     Dates: start: 20190513, end: 20190520
  6. FLUCLOXACILLIN [Concomitant]
     Active Substance: FLUCLOXACILLIN
     Indication: PNEUMONIA
  7. FILGRASTIM [Concomitant]
     Active Substance: FILGRASTIM
     Dosage: 300 UG, DAILY
     Route: 058
     Dates: start: 20151005, end: 20151008
  8. GENTAMICIN. [Concomitant]
     Active Substance: GENTAMICIN
     Indication: PNEUMONIA
     Dosage: 345 MG, DAILY
     Route: 042
     Dates: start: 20151005, end: 20151008
  9. GENTAMICIN. [Concomitant]
     Active Substance: GENTAMICIN
     Dosage: UNK
     Route: 042
     Dates: start: 20190627, end: 20190701
  10. DOCETAXEL. [Suspect]
     Active Substance: DOCETAXEL
     Dosage: 108 MG, Q3W (EVERY 3 WEEKS)
     Route: 042
     Dates: start: 20150925, end: 20151127
  11. PERTUZUMAB. [Suspect]
     Active Substance: PERTUZUMAB
     Dosage: 420 MG, EVERY 3 WEEKS MAINTAINANCE DOSE/420 MG, MAINTENANCE DOSE
     Route: 042
     Dates: start: 20150814, end: 20180511
  12. METRONIDAZOLE. [Concomitant]
     Active Substance: METRONIDAZOLE
     Dosage: 400 MG PER 0.33 DAY
     Route: 048
     Dates: start: 20151005
  13. ZOPICLONE [Concomitant]
     Active Substance: ZOPICLONE
     Indication: INSOMNIA
     Dosage: 3.75 MG
     Route: 048
     Dates: start: 20190521, end: 20190603
  14. TRASTUZUMAB (UNKNOWN) [Suspect]
     Active Substance: TRASTUZUMAB
     Indication: BREAST CANCER METASTATIC
     Dosage: LOADING DOSE 8 MG/KG
     Route: 042
     Dates: start: 20150721, end: 20150721
  15. NERATINIB [Suspect]
     Active Substance: NERATINIB
     Indication: BREAST CANCER METASTATIC
     Dosage: 240 MG DAILY
     Route: 048
     Dates: start: 20181101, end: 20190109
  16. GLYCEROL [Concomitant]
     Active Substance: GLYCERIN
     Indication: CONSTIPATION
     Dosage: 4 G
     Dates: start: 20190513, end: 20190629
  17. AMITRIPTYLINE HYDROCHLORIDE. [Concomitant]
     Active Substance: AMITRIPTYLINE HYDROCHLORIDE
     Dosage: 10 MG
     Route: 048
     Dates: start: 20190213, end: 20190703
  18. BUDESONIDE. [Concomitant]
     Active Substance: BUDESONIDE
     Dosage: 9 MG
     Route: 048
     Dates: start: 20181101, end: 20181129
  19. CYCLIZINE HYDROCHLORIDE [Concomitant]
     Active Substance: CYCLIZINE HYDROCHLORIDE
     Indication: NAUSEA
     Dosage: 50 MG, PER 0.33 DAY
     Route: 048
     Dates: start: 20181121, end: 20190703
  20. PROCHLORPERAZINE. [Concomitant]
     Active Substance: PROCHLORPERAZINE
     Indication: PRODUCT USED FOR UNKNOWN INDICATION
     Dosage: 5 MG PER 0.33 DAY
     Route: 048
     Dates: start: 20160106, end: 20160113
  21. DOCETAXEL. [Suspect]
     Active Substance: DOCETAXEL
     Dosage: 86 MG PER 3 WEEK  86 MG, Q3W (EVERY 3 WEEKS)
     Route: 042
     Dates: start: 20150814, end: 20150904
  22. PERTUZUMAB. [Suspect]
     Active Substance: PERTUZUMAB
     Indication: BREAST CANCER METASTATIC
     Dosage: 840 MG, LOADING DOSE
     Route: 042
     Dates: start: 20150721, end: 20150721
  23. VINORELBINE [Suspect]
     Active Substance: VINORELBINE TARTRATE
     Indication: BREAST CANCER METASTATIC
     Dosage: 110 MG
     Route: 048
     Dates: start: 20190522, end: 20190529
  24. DOMPERIDONE [Concomitant]
     Active Substance: DOMPERIDONE
     Dosage: TID FOR 3 DAYS AFTER DAY 1 AND 8 OF CHEM
     Route: 048
     Dates: start: 20190216, end: 20190610
  25. ONDANSETRON [Concomitant]
     Active Substance: ONDANSETRON
     Dosage: 8 MG
     Route: 048
     Dates: start: 20190522, end: 20190610
  26. LORAZEPAM. [Concomitant]
     Active Substance: LORAZEPAM
     Indication: ANXIETY
     Dosage: 1 MG
     Route: 048
     Dates: start: 20190611, end: 20190703
  27. HALOPERIDOL. [Concomitant]
     Active Substance: HALOPERIDOL
     Dosage: 1.5 MG
     Dates: start: 20190702, end: 20190703
  28. COD LIVER OIL [Concomitant]
     Active Substance: COD LIVER OIL
     Dosage: UNK
     Route: 048
     Dates: start: 20171213, end: 20190703
  29. TRASTUZUMAB (UNKNOWN) [Suspect]
     Active Substance: TRASTUZUMAB
     Dosage: 400 MG EVERY 3 WEEKS, MAINTAINANCE DOSE 6 MG/KG)/ 400 MG, TIW (MAINTAINANCE DOSE6 MG/KG)FORMULATION:
     Route: 042
     Dates: start: 20150814, end: 20180511
  30. ERIBULIN MESYLATE [Suspect]
     Active Substance: ERIBULIN MESYLATE
     Indication: BREAST CANCER METASTATIC
     Dosage: 2.5 MG, Q3W (EVERY 3 WEEKS) (PHARMACEUTICAL DOSAGE FORM: UNKNOWN)
     Route: 042
     Dates: start: 20190222, end: 20190412
  31. CAPECITABINE. [Suspect]
     Active Substance: CAPECITABINE
     Indication: BREAST CANCER METASTATIC
     Dosage: 500 MG
     Route: 048
     Dates: start: 20181031, end: 20190130
  32. MACROGOL [Concomitant]
     Active Substance: POLYETHYLENE GLYCOLS
     Indication: CONSTIPATION
     Dosage: QD (0.33)/ PER 0.33 DAY
     Route: 048
     Dates: start: 20190513, end: 20190629
  33. PARACETAMOL [Concomitant]
     Active Substance: ACETAMINOPHEN
     Dosage: 1 G PER 0.25 DAY
     Route: 048
     Dates: start: 20151006, end: 20151008
  34. FLUCLOXACILLIN [Concomitant]
     Active Substance: FLUCLOXACILLIN
     Indication: PSEUDOMONAS INFECTION
     Dosage: UNK
     Dates: start: 20190627, end: 20190703
  35. E45 [Concomitant]
     Active Substance: LANOLIN\LIGHT MINERAL OIL\PARAFFIN
     Dosage: 30 G
     Route: 061
     Dates: start: 20151116
  36. CALCICHEW D3 FORTE [Concomitant]
     Active Substance: CALCIUM\CHOLECALCIFEROL
     Dosage: UNK, PER 0.5 DAY
     Route: 048
     Dates: start: 20150720, end: 20190703
  37. FILGRASTIM [Concomitant]
     Active Substance: FILGRASTIM
     Dosage: 300 UG, DAILY
     Route: 058
     Dates: start: 20151025, end: 20151031
  38. FILGRASTIM [Concomitant]
     Active Substance: FILGRASTIM
     Dosage: 300 UG, DAILY
     Route: 058
     Dates: start: 20151120, end: 20151126
  39. TRIMETHOPRIM. [Concomitant]
     Active Substance: TRIMETHOPRIM
     Dosage: 200 MG PER 0.5 DAY
     Route: 048
     Dates: start: 20151014, end: 20151202
  40. BISOPROLOL [Concomitant]
     Active Substance: BISOPROLOL
     Dosage: 1.25 MG, DAILY
     Route: 048
     Dates: start: 20160826, end: 20160906
  41. TRASTUZUMAB. [Suspect]
     Active Substance: TRASTUZUMAB
     Indication: BREAST CANCER METASTATIC
     Dosage: 600 MG, EVERY 3 WEEKS
     Route: 058
     Dates: start: 20190522, end: 20190529
  42. DOCETAXEL. [Suspect]
     Active Substance: DOCETAXEL
     Indication: BREAST CANCER METASTATIC
     Dosage: 108 MG, Q3W (EVERY 3 WEEKS)
     Route: 042
     Dates: start: 20150722, end: 20150722
  43. TRASTUZUMAB EMTANSINE [Suspect]
     Active Substance: ADO-TRASTUZUMAB EMTANSINE
     Indication: BREAST CANCER METASTATIC
     Dosage: 240 MG, Q3W (EVERY 3 WEEKS)
     Route: 042
     Dates: start: 20180625, end: 20180928
  44. ZOLEDRONIC ACID [Concomitant]
     Active Substance: ZOLEDRONIC ACID
     Dosage: 4 MG, MONTHLY
     Route: 042
     Dates: start: 20151027, end: 20190703
  45. METRONIDAZOLE. [Concomitant]
     Active Substance: METRONIDAZOLE
     Dosage: 0.75 % PER 0.33 DAY
     Route: 061
     Dates: start: 20190508, end: 20190529
  46. MIDAZOLAM. [Concomitant]
     Active Substance: MIDAZOLAM
     Indication: INSOMNIA
     Dosage: 1.25 MG
     Route: 058
     Dates: start: 20190702, end: 20190703
  47. VITAMIN C [Concomitant]
     Active Substance: ASCORBIC ACID
     Dosage: UNK, DAILY
     Route: 048
     Dates: start: 20171213, end: 20190703

REACTIONS (9)
  - Ureteric obstruction [Recovered/Resolved]
  - Breast pain [Not Recovered/Not Resolved]
  - Pleural effusion [Not Recovered/Not Resolved]
  - Pneumonia [Fatal]
  - Pseudomonas infection [Not Recovered/Not Resolved]
  - Pneumothorax [Recovered/Resolved]
  - Breast pain [Recovered/Resolved]
  - Cough [Not Recovered/Not Resolved]
  - Musculoskeletal chest pain [Not Recovered/Not Resolved]

NARRATIVE: CASE EVENT DATE: 20160316
